FAERS Safety Report 8551969-5 (Version None)
Quarter: 2012Q3

REPORT INFORMATION
  Report Type: 
  Country: None (occurrence: None)
  Receive Date: 20120730
  Receipt Date: 20120718
  Transmission Date: 20120928
  Serious: Yes (Other)
  Sender: FDA-Public Use
  Company Number: ES-FRI-1000037414

PATIENT
  Age: 78 Year
  Sex: Male

DRUGS (4)
  1. BRONCHODILATORS [Concomitant]
  2. ROFLUMILAST [Suspect]
     Dosage: 0.5 DF
     Dates: start: 20120301, end: 20120101
  3. ROFLUMILAST [Suspect]
     Dosage: REGULAR POSOLOGY
     Dates: start: 20120101, end: 20120419
  4. CORTICOIDS [Concomitant]

REACTIONS (5)
  - METASTASES TO BONE [None]
  - WRONG TECHNIQUE IN DRUG USAGE PROCESS [None]
  - PAIN [None]
  - HERPES ZOSTER [None]
  - LUNG NEOPLASM [None]
